FAERS Safety Report 4387773-1 (Version None)
Quarter: 2004Q2

REPORT INFORMATION
  Report Type: 
  Country: None (occurrence: None)
  Receive Date: 20040623
  Receipt Date: 20040603
  Transmission Date: 20050107
  Serious: Yes (Hospitalization, Other)
  Sender: FDA-Public Use
  Company Number: USA040669192

PATIENT
  Age: 72 Year
  Sex: Female

DRUGS (5)
  1. EVISTA [Suspect]
  2. DIGOXIN [Concomitant]
  3. NITROGLYCERIN [Concomitant]
  4. ASPIRIN [Concomitant]
  5. PLAVIX [Concomitant]

REACTIONS (3)
  - DEHYDRATION [None]
  - DIARRHOEA [None]
  - NEOPLASM MALIGNANT [None]
